FAERS Safety Report 8429513-2 (Version None)
Quarter: 2012Q2

REPORT INFORMATION
  Report Type: 
  Country: None (occurrence: None)
  Receive Date: 20120612
  Receipt Date: 20120606
  Transmission Date: 20120825
  Serious: Yes (Other)
  Sender: FDA-Public Use
  Company Number: US-B.I. PHARMACEUTICALS,INC./RIDGEFIELD-2012-BP-13210BP

PATIENT
  Age: 5 Decade
  Sex: Male

DRUGS (1)
  1. TRADJENTA [Suspect]
     Indication: TYPE 2 DIABETES MELLITUS

REACTIONS (5)
  - PANCREATITIS [None]
  - NAUSEA [None]
  - LIPASE INCREASED [None]
  - AMYLASE INCREASED [None]
  - ABDOMINAL PAIN [None]
